FAERS Safety Report 10721656 (Version 3)
Quarter: 2015Q1

REPORT INFORMATION
  Report Type: Report from Study
  Country: GB (occurrence: GB)
  Receive Date: 20150119
  Receipt Date: 20150225
  Transmission Date: 20150721
  Serious: Yes (Other)
  Sender: FDA-Public Use
  Company Number: GB-ROCHE-1322203

PATIENT
  Age: 68 Year
  Sex: Male
  Weight: 91 kg

DRUGS (9)
  1. TOCILIZUMAB [Suspect]
     Active Substance: TOCILIZUMAB
     Dosage: IN ACCORDANCE WITH WEIGHT CHANGES. DOSE PER PROTOCOL (8 MG/KG)
     Route: 042
     Dates: start: 20131120
  2. TOCILIZUMAB [Suspect]
     Active Substance: TOCILIZUMAB
     Dosage: IN ACCORDANCE WITH WEIGHT CHANGES, DOSE PER PROTOCOL (8 MG/KG)
     Route: 042
     Dates: start: 20130914
  3. TOCILIZUMAB [Suspect]
     Active Substance: TOCILIZUMAB
     Indication: RHEUMATOID ARTHRITIS
     Dosage: IN ACCORDANCE WITH WEIGHT CHANGES. DOSE PER PROTOCOL (8 MG/KG)
     Route: 042
     Dates: start: 20130726
  4. TOCILIZUMAB [Suspect]
     Active Substance: TOCILIZUMAB
     Dosage: IN ACCORDANCE WITH WEIGHT CHANGES.
     Route: 042
     Dates: start: 20131217
  5. TOCILIZUMAB [Suspect]
     Active Substance: TOCILIZUMAB
     Dosage: IN ACCORDANCE WITH WEIGHT CHANGES.
     Route: 042
     Dates: start: 20130823
  6. TOCILIZUMAB [Suspect]
     Active Substance: TOCILIZUMAB
     Dosage: REDUCED DOSE: 4 MG/KG?LAST DOSE PRIOR TO SAE 17/DEC/2013
     Route: 042
     Dates: start: 20140128
  7. TOCILIZUMAB [Suspect]
     Active Substance: TOCILIZUMAB
     Dosage: RESTART DATE
     Route: 042
     Dates: start: 20141222
  8. METHOTREXATE [Suspect]
     Active Substance: METHOTREXATE
     Indication: RHEUMATOID ARTHRITIS
     Dosage: DATE OF LAST DOSE OF METHOTREXATE PRIOR TO SAE (HEPATIC EVENT-RIASED ALT): 13/DEC/2013.
     Route: 048
     Dates: start: 20130725
  9. METHOTREXATE [Suspect]
     Active Substance: METHOTREXATE
     Dosage: DOSE REDUCED
     Route: 048
     Dates: start: 20131217

REACTIONS (2)
  - Alanine aminotransferase increased [Not Recovered/Not Resolved]
  - Alanine aminotransferase increased [Recovering/Resolving]

NARRATIVE: CASE EVENT DATE: 20131216
